FAERS Safety Report 10912527 (Version 1)
Quarter: 2015Q1

REPORT INFORMATION
  Report Type: Spontaneous
  Country: US (occurrence: None)
  Receive Date: 20150310
  Receipt Date: 20150310
  Transmission Date: 20150721
  Serious: No
  Sender: FDA-Public Use
  Company Number: None

PATIENT
  Age: 49 Year
  Sex: Female
  Weight: 68.04 kg

DRUGS (2)
  1. ADVIL [Suspect]
     Active Substance: IBUPROFEN
     Indication: MYALGIA
     Dosage: 2 PILLS ONCE DAILY
     Route: 048
     Dates: start: 20150305, end: 20150305
  2. FLINSTONE VITAMINS [Concomitant]

REACTIONS (7)
  - Gingival injury [None]
  - Paraesthesia oral [None]
  - Gingival erythema [None]
  - Product coating issue [None]
  - Gingival pain [None]
  - Wrong technique in drug usage process [None]
  - Oral discomfort [None]

NARRATIVE: CASE EVENT DATE: 20150305
